FAERS Safety Report 4584842-8 (Version None)
Quarter: 2005Q1

REPORT INFORMATION
  Report Type: 
  Country: None (occurrence: None)
  Receive Date: 20050214
  Receipt Date: 20050204
  Transmission Date: 20050727
  Serious: Yes (Other)
  Sender: FDA-Public Use
  Company Number: US012649

PATIENT
  Age: 59 Year
  Sex: Female

DRUGS (1)
  1. ACTIQ [Suspect]
     Indication: BACK PAIN
     Dosage: 800 MG BUCCAL
     Route: 002
     Dates: start: 20010101

REACTIONS (6)
  - DISEASE RECURRENCE [None]
  - HYPERPLASIA [None]
  - MOUTH ULCERATION [None]
  - PYOGENIC GRANULOMA [None]
  - SURGICAL PROCEDURE REPEATED [None]
  - TONGUE ULCERATION [None]
